FAERS Safety Report 8060534-8 (Version None)
Quarter: 2012Q1

REPORT INFORMATION
  Report Type: 
  Country: None (occurrence: None)
  Receive Date: 20120120
  Receipt Date: 20120111
  Transmission Date: 20120608
  Serious: Yes (Other)
  Sender: FDA-Public Use
  Company Number: CHPA2012US001089

PATIENT
  Age: 18 Year
  Sex: Female

DRUGS (2)
  1. EXCEDRIN (MIGRAINE) [Suspect]
     Indication: MIGRAINE
     Dosage: 1 DF, PRN
     Route: 048
     Dates: start: 20111201
  2. PROPRANOLOL [Concomitant]
     Dosage: UNK
     Dates: start: 20111209

REACTIONS (4)
  - VISION BLURRED [None]
  - UNDERDOSE [None]
  - EMOTIONAL DISTRESS [None]
  - DIZZINESS [None]
